FAERS Safety Report 21135634 (Version 1)
Quarter: 2022Q3

REPORT INFORMATION
  Report Type: Spontaneous
  Country: US (occurrence: US)
  Receive Date: 20220727
  Receipt Date: 20220727
  Transmission Date: 20221027
  Serious: No
  Sender: FDA-Public Use
  Company Number: US-Accord-244300

PATIENT

DRUGS (1)
  1. LETROZOLE [Suspect]
     Active Substance: LETROZOLE
     Indication: Product used for unknown indication
     Dosage: STRENGTH: 2.5MG, 2.5MG TABLET TO BE SPLIT IN HALF AND TAKE 1/2 TABLET EVERY OTHER DAY

REACTIONS (1)
  - Wrong technique in product usage process [Unknown]
